FAERS Safety Report 12666135 (Version 3)
Quarter: 2021Q1

REPORT INFORMATION
  Report Type: Spontaneous
  Country: US (occurrence: US)
  Receive Date: 20160818
  Receipt Date: 20210223
  Transmission Date: 20210419
  Serious: No
  Sender: FDA-Public Use
  Company Number: US-JAZZ-2016-US-005646

PATIENT
  Sex: Female

DRUGS (22)
  1. POTASSIUM CL [Concomitant]
     Active Substance: POTASSIUM CHLORIDE
  2. WELLBUTRIN [Concomitant]
     Active Substance: BUPROPION HYDROCHLORIDE
  3. FISH OIL 1?A?DAY + VITAMIN D3 [Concomitant]
  4. LISINOPRIL. [Concomitant]
     Active Substance: LISINOPRIL
  5. FUROSEMIDE SODIUM [Concomitant]
     Active Substance: FUROSEMIDE SODIUM
  6. PAROXETINE HCL [Concomitant]
     Active Substance: PAROXETINE HYDROCHLORIDE
  7. XYREM [Suspect]
     Active Substance: SODIUM OXYBATE
     Indication: NARCOLEPSY
     Dosage: 2.25 G, BID
     Route: 048
     Dates: start: 200306, end: 2003
  8. XYREM [Suspect]
     Active Substance: SODIUM OXYBATE
     Indication: CATAPLEXY
     Dosage: 2.25 G, BID
     Route: 048
     Dates: start: 200609, end: 200609
  9. OXYCODONE HYDROCHLORIDE. [Concomitant]
     Active Substance: OXYCODONE HYDROCHLORIDE
  10. SUCRALFATE. [Concomitant]
     Active Substance: SUCRALFATE
  11. ACETYLSALICYLIC ACID [Concomitant]
     Active Substance: ASPIRIN
  12. ESOMEPRAZOLE MAGNESIUM. [Concomitant]
     Active Substance: ESOMEPRAZOLE MAGNESIUM
  13. SPIRONOLACTONE. [Concomitant]
     Active Substance: SPIRONOLACTONE
  14. ALLEGRA ALLERGY [Concomitant]
     Active Substance: FEXOFENADINE HYDROCHLORIDE
  15. BUPROPION HCL [Concomitant]
     Active Substance: BUPROPION HYDROCHLORIDE
  16. FUROSEMIDE. [Concomitant]
     Active Substance: FUROSEMIDE
  17. XYREM [Suspect]
     Active Substance: SODIUM OXYBATE
     Dosage: 2.5 G, BID
     Route: 048
     Dates: start: 201408
  18. MODAFINIL. [Concomitant]
     Active Substance: MODAFINIL
  19. ADVAIR HFA [Concomitant]
     Active Substance: FLUTICASONE PROPIONATE\SALMETEROL XINAFOATE
  20. XYREM [Suspect]
     Active Substance: SODIUM OXYBATE
     Dosage: DOSE ADJUSTMENTS
     Route: 048
  21. FLUTICASONE PROPIONATE. [Concomitant]
     Active Substance: FLUTICASONE PROPIONATE
  22. CALCIUM PHOSPHATE [Concomitant]
     Active Substance: CALCIUM PHOSPHATE

REACTIONS (1)
  - Pre-existing condition improved [Unknown]
